FAERS Safety Report 6574347-7 (Version None)
Quarter: 2010Q1

REPORT INFORMATION
  Report Type: 
  Country: None (occurrence: None)
  Receive Date: 20100208
  Receipt Date: 20100129
  Transmission Date: 20100710
  Serious: Yes (Hospitalization)
  Sender: FDA-Public Use
  Company Number: US-ABBOTT-10P-163-0622934-00

PATIENT
  Sex: Male
  Weight: 99.88 kg

DRUGS (7)
  1. NIASPAN [Suspect]
     Indication: BLOOD TRIGLYCERIDES INCREASED
     Route: 048
     Dates: start: 20030101
  2. ZOCOR [Concomitant]
     Indication: DRUG USE FOR UNKNOWN INDICATION
     Route: 048
  3. JANUVIA [Concomitant]
     Indication: DIABETES MELLITUS
     Route: 048
  4. GLIPIZIDE [Concomitant]
     Indication: DIABETES MELLITUS
     Route: 048
  5. DIOVAN [Concomitant]
     Indication: HYPERTENSION
     Route: 048
  6. COREG [Concomitant]
     Indication: HYPERTENSION
     Route: 048
  7. POLYGAM S/D [Concomitant]
     Indication: IMMUNOGLOBULINS DECREASED
     Route: 042

REACTIONS (7)
  - BLOOD TRIGLYCERIDES ABNORMAL [None]
  - CORONARY ARTERY OCCLUSION [None]
  - DYSPNOEA [None]
  - FEELING HOT [None]
  - FLUSHING [None]
  - GOUT [None]
  - PRURITUS [None]
